FAERS Safety Report 8083946 (Version 2)
Quarter: 2013Q2

REPORT INFORMATION
  Report Type: Spontaneous
  Country: ES (occurrence: ES)
  Receive Date: 20110810
  Receipt Date: 20130528
  Transmission Date: 20140414
  Serious: Yes (Hospitalization, Other)
  Sender: FDA-Public Use
  Company Number: ES-JNJFOC-20110801378

PATIENT
  Age: 35 Year
  Sex: Male

DRUGS (2)
  1. INTELENCE [Suspect]
     Indication: HIV INFECTION
     Route: 048
     Dates: start: 20110706, end: 20110729
  2. TRUVADA [Concomitant]
     Indication: HIV INFECTION
     Dates: start: 20110706

REACTIONS (4)
  - Headache [Unknown]
  - Pyrexia [Unknown]
  - Cytomegalovirus infection [Unknown]
  - Rash [Recovered/Resolved]
